FAERS Safety Report 10453969 (Version 1)
Quarter: 2014Q3

REPORT INFORMATION
  Report Type: Spontaneous
  Country: US (occurrence: US)
  Receive Date: 20140915
  Receipt Date: 20140915
  Transmission Date: 20150326
  Serious: No
  Sender: FDA-Public Use
  Company Number: US-BRISTOL-MYERS SQUIBB COMPANY-20781803

PATIENT
  Age: 66 Year
  Sex: Male
  Weight: 113.38 kg

DRUGS (1)
  1. ELIQUIS [Suspect]
     Active Substance: APIXABAN
     Indication: ATRIAL FIBRILLATION
     Dosage: TABLETS
     Route: 048
     Dates: start: 20140516

REACTIONS (1)
  - Drug administration error [Not Recovered/Not Resolved]
